FAERS Safety Report 25872172 (Version 3)
Quarter: 2025Q4

REPORT INFORMATION
  Report Type: Spontaneous
  Country: US (occurrence: US)
  Receive Date: 20251002
  Receipt Date: 20251110
  Transmission Date: 20260118
  Serious: No
  Sender: AMGEN
  Company Number: US-AMGEN-USASP2025191321

PATIENT

DRUGS (4)
  1. PAVBLU [Suspect]
     Active Substance: AFLIBERCEPT-AYYH
     Indication: Product used for unknown indication
     Dosage: UNK
     Route: 065
  2. PAVBLU [Suspect]
     Active Substance: AFLIBERCEPT-AYYH
     Dosage: UNK
     Route: 065
  3. PAVBLU [Suspect]
     Active Substance: AFLIBERCEPT-AYYH
     Dosage: UNK
     Route: 065
  4. PAVBLU [Suspect]
     Active Substance: AFLIBERCEPT-AYYH
     Dosage: UNK
     Route: 065

REACTIONS (1)
  - Needle issue [Unknown]
